FAERS Safety Report 8215058-1 (Version None)
Quarter: 2012Q1

REPORT INFORMATION
  Report Type: 
  Country: None (occurrence: None)
  Receive Date: 20120316
  Receipt Date: 20120306
  Transmission Date: 20120608
  Serious: Yes (Hospitalization)
  Sender: FDA-Public Use
  Company Number: DE-ELI_LILLY_AND_COMPANY-DE201203001306

PATIENT
  Age: 76 Year
  Sex: Female

DRUGS (3)
  1. FORTEO [Suspect]
     Indication: OSTEOPOROSIS
     Dosage: UNK, QD
     Route: 058
     Dates: start: 20100607, end: 20120305
  2. CORTISONE ACETATE [Concomitant]
     Dosage: UNK
     Dates: start: 19920101
  3. METHOTREXATE SODIUM [Concomitant]

REACTIONS (3)
  - LACERATION [None]
  - FALL [None]
  - BLOOD TEST ABNORMAL [None]
